FAERS Safety Report 8402650-4 (Version None)
Quarter: 2012Q2

REPORT INFORMATION
  Report Type: 
  Country: None (occurrence: None)
  Receive Date: 20120601
  Receipt Date: 20120525
  Transmission Date: 20120825
  Serious: Yes (Hospitalization, Other)
  Sender: FDA-Public Use
  Company Number: CA-ROCHE-1072835

PATIENT
  Sex: Female
  Weight: 122.13 kg

DRUGS (4)
  1. METHYLPREDNISOLONE [Concomitant]
     Route: 042
     Dates: start: 20111212, end: 20111212
  2. MABTHERA [Suspect]
     Indication: RHEUMATOID ARTHRITIS
     Route: 042
     Dates: start: 20111114
  3. DIPHENHYDRAMINE HCL [Concomitant]
     Route: 048
     Dates: start: 20111212, end: 20111212
  4. ACETAMINOPHEN [Concomitant]
     Route: 048
     Dates: start: 20111212, end: 20111212

REACTIONS (4)
  - PNEUMONIA [None]
  - PULMONARY EMBOLISM [None]
  - BRONCHITIS [None]
  - NASAL CYST [None]
